FAERS Safety Report 15831234 (Version 2)
Quarter: 2019Q1

REPORT INFORMATION
  Report Type: Report from Study
  Country: US (occurrence: US)
  Receive Date: 20190116
  Receipt Date: 20190313
  Transmission Date: 20190417
  Serious: Yes (Death, Hospitalization, Other)
  Sender: FDA-Public Use
  Company Number: US-BRISTOL-MYERS SQUIBB COMPANY-BMS-2019-002756

PATIENT
  Age: 18 Year
  Sex: Female
  Weight: 49 kg

DRUGS (3)
  1. IPILIMUMAB [Suspect]
     Active Substance: IPILIMUMAB
     Indication: CLEAR CELL CARCINOMA OF CERVIX
     Dosage: 50 MG, (1 MG/KG) ONCE
     Route: 042
     Dates: start: 20181221
  2. NIVOLUMAB [Suspect]
     Active Substance: NIVOLUMAB
     Indication: CLEAR CELL CARCINOMA OF CERVIX
     Dosage: 240 MILLIGRAM, Q2WK
     Route: 042
     Dates: start: 20181207
  3. NIVOLUMAB [Suspect]
     Active Substance: NIVOLUMAB
     Indication: CLEAR CELL CARCINOMA OF CERVIX
     Dosage: 240 MILLIGRAM, Q2WK
     Route: 042
     Dates: start: 20181221

REACTIONS (2)
  - Malignant neoplasm progression [Fatal]
  - Small intestinal obstruction [Not Recovered/Not Resolved]

NARRATIVE: CASE EVENT DATE: 20181230
